FAERS Safety Report 6273097-4 (Version None)
Quarter: 2009Q3

REPORT INFORMATION
  Report Type: 
  Country: None (occurrence: None)
  Receive Date: 20090715
  Receipt Date: 20090715
  Transmission Date: 20100115
  Serious: No
  Sender: FDA-Public Use
  Company Number: None

PATIENT
  Age: 17 Year
  Sex: Female

DRUGS (6)
  1. AMLODIPINE BESYLATE [Suspect]
     Dosage: 150 MG
  2. METFORMIN HCL [Concomitant]
  3. ACETAMINOPHEN [Concomitant]
  4. IBUPROFEN [Concomitant]
  5. PREDNISONE TAB [Concomitant]
  6. PRAZOSINE [Concomitant]

REACTIONS (4)
  - GASTROINTESTINAL INJURY [None]
  - INTESTINAL INFARCTION [None]
  - INTESTINAL ISCHAEMIA [None]
  - POISONING [None]
